FAERS Safety Report 9882493 (Version 2)
Quarter: 2014Q3

REPORT INFORMATION
  Report Type: Spontaneous
  Country: US (occurrence: US)
  Receive Date: 20140207
  Receipt Date: 20140821
  Transmission Date: 20150326
  Serious: Yes (Death, Hospitalization, Other)
  Sender: FDA-Public Use
  Company Number: US-009507513-1402USA001259

PATIENT
  Sex: Female
  Weight: 104.31 kg

DRUGS (1)
  1. NUVARING [Suspect]
     Active Substance: ETHINYL ESTRADIOL\ETONOGESTREL
     Indication: CONTRACEPTION
     Dosage: UNK
     Route: 067
     Dates: start: 201107, end: 20130314

REACTIONS (11)
  - Cardio-respiratory arrest [Unknown]
  - Obesity [Unknown]
  - Metabolic acidosis [Unknown]
  - Hyperkalaemia [Unknown]
  - Pulmonary embolism [Fatal]
  - Renal failure acute [Unknown]
  - Septic shock [Unknown]
  - Thrombocytopenia [Unknown]
  - Cardiomegaly [Unknown]
  - Hypertension [Unknown]
  - Back pain [Unknown]

NARRATIVE: CASE EVENT DATE: 201210
